FAERS Safety Report 17860643 (Version 1)
Quarter: 2020Q2

REPORT INFORMATION
  Report Type: Spontaneous
  Country: US (occurrence: US)
  Receive Date: 20200604
  Receipt Date: 20200604
  Transmission Date: 20200714
  Serious: No
  Sender: FDA-Public Use
  Company Number: US-SA-2020SA141438

PATIENT

DRUGS (1)
  1. DUPIXENT [Suspect]
     Active Substance: DUPILUMAB
     Dosage: UNK

REACTIONS (9)
  - Eczema eyelids [Unknown]
  - Eyelids pruritus [Unknown]
  - Ocular hyperaemia [Unknown]
  - Ocular discomfort [Unknown]
  - Eye inflammation [Unknown]
  - Eye pruritus [Unknown]
  - Pruritus [Unknown]
  - Eczema [Unknown]
  - Eye discharge [Unknown]

NARRATIVE: CASE EVENT DATE: 202005
